FAERS Safety Report 14255644 (Version 1)
Quarter: 2017Q4

REPORT INFORMATION
  Report Type: Report from Study
  Country: CZ (occurrence: CZ)
  Receive Date: 20171206
  Receipt Date: 20171206
  Transmission Date: 20180321
  Serious: Yes (Life-Threatening)
  Sender: FDA-Public Use
  Company Number: CZ-CELGENEUS-CZE-20171108589

PATIENT
  Age: 67 Year
  Sex: Female
  Weight: 68.7 kg

DRUGS (1)
  1. REVLIMID [Suspect]
     Active Substance: LENALIDOMIDE
     Indication: PLASMA CELL MYELOMA
     Dosage: 10 MILLIGRAM
     Route: 048
     Dates: start: 20140206, end: 20170425

REACTIONS (1)
  - Acute leukaemia [Recovered/Resolved]

NARRATIVE: CASE EVENT DATE: 20170426
